FAERS Safety Report 15617495 (Version 2)
Quarter: 2021Q1

REPORT INFORMATION
  Report Type: Spontaneous
  Country: US (occurrence: US)
  Receive Date: 20181114
  Receipt Date: 20210216
  Transmission Date: 20210419
  Serious: Yes (Other)
  Sender: FDA-Public Use
  Company Number: US-ELI_LILLY_AND_COMPANY-US201811001649

PATIENT
  Age: 62 Year
  Sex: Female

DRUGS (14)
  1. NOVOLOG [Concomitant]
     Active Substance: INSULIN ASPART
     Dosage: UNK UNK, DAILY (30?40 UNITS BEFORE DINNER)
  2. NOVOLOG [Concomitant]
     Active Substance: INSULIN ASPART
     Dosage: UNK UNK, DAILY (10?12 UNITS WITH SNACKS)
  3. NOVOLOG [Concomitant]
     Active Substance: INSULIN ASPART
     Indication: TYPE 2 DIABETES MELLITUS
     Dosage: UNK UNK, EACH MORNING (14?16 UNITS BEFORE BREAKFAST)
  4. ADVAIR HFA [Concomitant]
     Active Substance: FLUTICASONE PROPIONATE\SALMETEROL XINAFOATE
     Indication: DYSPNOEA
     Dosage: UNK
  5. TRISIBAM [Concomitant]
     Indication: TYPE 2 DIABETES MELLITUS
     Dosage: 104 U, EACH MORNING
  6. TRULICITY [Suspect]
     Active Substance: DULAGLUTIDE
     Indication: TYPE 2 DIABETES MELLITUS
     Dosage: 1.5 MG, WEEKLY (1/W)
     Route: 058
     Dates: start: 20180408
  7. TRULICITY [Suspect]
     Active Substance: DULAGLUTIDE
     Dosage: 1.5 MG, WEEKLY (1/W)
     Route: 058
  8. TOUJEO [Concomitant]
     Active Substance: INSULIN GLARGINE
     Indication: TYPE 2 DIABETES MELLITUS
     Dosage: 98 U, EACH MORNING
  9. TRISIBAM [Concomitant]
     Dosage: 124 U, EACH EVENING
  10. TRULICITY [Suspect]
     Active Substance: DULAGLUTIDE
     Dosage: 1.5 MG, WEEKLY (1/W)
     Route: 058
     Dates: start: 20180408
  11. METFORMIN [Concomitant]
     Active Substance: METFORMIN HYDROCHLORIDE
     Indication: TYPE 2 DIABETES MELLITUS
     Dosage: 750 MG, DAILY
     Route: 065
  12. METFORMIN [Concomitant]
     Active Substance: METFORMIN HYDROCHLORIDE
     Dosage: 1500 U, EACH EVENING
     Route: 065
  13. NOVOLOG [Concomitant]
     Active Substance: INSULIN ASPART
     Dosage: UNK UNK, DAILY (26?32 UNITS BEFORE LUNCH)
  14. TOUJEO [Concomitant]
     Active Substance: INSULIN GLARGINE
     Dosage: 120 U, EACH EVENING

REACTIONS (6)
  - Chronic kidney disease [Unknown]
  - Clostridium difficile colitis [Not Recovered/Not Resolved]
  - Angina pectoris [Unknown]
  - Cerebrovascular accident [Unknown]
  - Angina pectoris [Unknown]
  - Cyst [Not Recovered/Not Resolved]

NARRATIVE: CASE EVENT DATE: 20180424
